FAERS Safety Report 6639761-X (Version None)
Quarter: 2010Q1

REPORT INFORMATION
  Report Type: 
  Country: None (occurrence: None)
  Receive Date: 20100318
  Receipt Date: 20100311
  Transmission Date: 20100710
  Serious: Yes (Death, Hospitalization)
  Sender: FDA-Public Use
  Company Number: PHHY2010CH15128

PATIENT
  Age: 51 Year
  Sex: Female

DRUGS (7)
  1. CYCLOSPORINE [Suspect]
     Indication: ACUTE GRAFT VERSUS HOST DISEASE IN LIVER
     Dosage: UNK
     Dates: start: 20071029
  2. VORICONAZOLE [Suspect]
     Indication: ACUTE GRAFT VERSUS HOST DISEASE IN LIVER
     Dosage: UNK
     Dates: start: 20071029, end: 20080116
  3. PREDNISONE [Suspect]
     Indication: ACUTE GRAFT VERSUS HOST DISEASE IN LIVER
     Dosage: UNK
     Dates: start: 20071029
  4. PENICILLIN V [Concomitant]
     Indication: ACUTE GRAFT VERSUS HOST DISEASE IN LIVER
     Dosage: UNK
     Dates: start: 20071029
  5. VALACICLOVIR [Concomitant]
     Indication: ACUTE GRAFT VERSUS HOST DISEASE IN LIVER
     Dosage: UNK
     Dates: start: 20071029
  6. CO-TRIMOXAZOLE [Concomitant]
     Indication: ACUTE GRAFT VERSUS HOST DISEASE IN LIVER
     Dosage: UNK
     Dates: start: 20071029
  7. FOLINIC ACID [Concomitant]
     Indication: ACUTE GRAFT VERSUS HOST DISEASE IN LIVER
     Dosage: UNK
     Dates: start: 20071029

REACTIONS (6)
  - ACUTE GRAFT VERSUS HOST DISEASE IN INTESTINE [None]
  - DIARRHOEA [None]
  - HEPATIC ENZYME ABNORMAL [None]
  - PYREXIA [None]
  - SYSTEMIC MYCOSIS [None]
  - ZYGOMYCOSIS [None]
